FAERS Safety Report 23059424 (Version 2)
Quarter: 2023Q4

REPORT INFORMATION
  Report Type: Spontaneous
  Country: US (occurrence: US)
  Receive Date: 20231012
  Receipt Date: 20231110
  Transmission Date: 20240110
  Serious: Yes (Other)
  Sender: FDA-Public Use
  Company Number: US-ABBVIE-5446158

PATIENT
  Sex: Female

DRUGS (1)
  1. KYBELLA [Suspect]
     Active Substance: DEOXYCHOLIC ACID
     Indication: Lipolysis procedure
     Dosage: TIME INTERVAL: AS NECESSARY: 2 ML VIALS
     Route: 058
     Dates: start: 202301, end: 202301

REACTIONS (2)
  - Injection site necrosis [Recovered/Resolved with Sequelae]
  - Injection site ulcer [Recovered/Resolved with Sequelae]

NARRATIVE: CASE EVENT DATE: 20230101
